FAERS Safety Report 24138408 (Version 1)
Quarter: 2024Q3

REPORT INFORMATION
  Report Type: Spontaneous
  Country: US (occurrence: US)
  Receive Date: 20240725
  Receipt Date: 20240725
  Transmission Date: 20241017
  Serious: No
  Sender: KYOWA
  Company Number: US-KYOWAKIRIN-2024KK017890

PATIENT

DRUGS (2)
  1. CRYSVITA [Suspect]
     Active Substance: BUROSUMAB-TWZA
     Indication: Hereditary hypophosphataemic rickets
     Dosage: 50 MG, 1X/2 WEEKS ( 20 MG EVERY 2 WEEKS ALONG WITH 30 MG VIAL FOR A TOTAL DOSE OF 50 MG EVERY 2 WEEK
     Route: 058
     Dates: start: 202303
  2. CRYSVITA [Suspect]
     Active Substance: BUROSUMAB-TWZA
     Indication: Hereditary hypophosphataemic rickets
     Dosage: 50 MG, 1X/2 WEEKS ( 20 MG EVERY 2 WEEKS ALONG WITH 30 MG VIAL FOR A TOTAL DOSE OF 50 MG EVERY 2 WEEK
     Route: 058
     Dates: start: 202303

REACTIONS (1)
  - Product dose omission issue [Unknown]
